FAERS Safety Report 5595450-4 (Version None)
Quarter: 2008Q1

REPORT INFORMATION
  Report Type: 
  Country: None (occurrence: None)
  Receive Date: 20080118
  Receipt Date: 20080111
  Transmission Date: 20080703
  Serious: Yes (Other)
  Sender: FDA-Public Use
  Company Number: US-JNJFOC-20070806022

PATIENT
  Age: 41 Year
  Sex: Male
  Weight: 64.41 kg

DRUGS (6)
  1. LEVAQUIN [Suspect]
     Indication: PROSTATE INFECTION
     Route: 048
  2. PREDNISONE [Suspect]
     Route: 048
  3. PREDNISONE [Suspect]
     Route: 048
  4. PREDNISONE [Suspect]
     Route: 048
  5. PREDNISONE [Suspect]
     Indication: INFLAMMATION
     Route: 048
  6. PREDNISONE [Suspect]
     Indication: DERMATITIS CONTACT
     Dosage: 21 DAY COURSE WHICH WAS COMPLETED WITHIN THE FIRST SEVERAL DAYS OF TAKING LEVAQUIN
     Route: 048

REACTIONS (6)
  - ANXIETY [None]
  - MUSCLE RIGIDITY [None]
  - MUSCULAR WEAKNESS [None]
  - PROSTATE INFECTION [None]
  - SENSORY DISTURBANCE [None]
  - TREMOR [None]
